FAERS Safety Report 25734856 (Version 3)
Quarter: 2025Q4

REPORT INFORMATION
  Report Type: Spontaneous
  Country: EU (occurrence: EU)
  Receive Date: 20250828
  Receipt Date: 20251107
  Transmission Date: 20260117
  Serious: Yes (Other)
  Sender: MERCK SHARP & DOHME LLC
  Company Number: None

PATIENT
  Age: 73 Year
  Sex: Male
  Weight: 87 kg

DRUGS (4)
  1. TEMOZOLOMIDE [Suspect]
     Active Substance: TEMOZOLOMIDE
     Indication: Glioblastoma
     Route: 048
     Dates: start: 20250731, end: 20250911
  2. ONDANSETRON [Concomitant]
     Active Substance: ONDANSETRON
     Indication: Antiemetic supportive care
     Route: 048
  3. METOCLOPRAMIDE [Concomitant]
     Active Substance: METOCLOPRAMIDE
     Indication: Antiemetic supportive care
     Route: 048
  4. BACTRIM [Suspect]
     Active Substance: SULFAMETHOXAZOLE\TRIMETHOPRIM
     Indication: Infection prophylaxis
     Route: 048
     Dates: start: 20250731, end: 20250911

REACTIONS (1)
  - Hepatic cytolysis [Recovering/Resolving]

NARRATIVE: CASE EVENT DATE: 20250807
